FAERS Safety Report 23597568 (Version 1)
Quarter: 2024Q1

REPORT INFORMATION
  Report Type: Spontaneous
  Country: FR (occurrence: FR)
  Receive Date: 20240305
  Receipt Date: 20240305
  Transmission Date: 20240409
  Serious: Yes (Other)
  Sender: FDA-Public Use
  Company Number: None

PATIENT
  Age: 19 Year
  Sex: Female

DRUGS (2)
  1. ACETAMINOPHEN [Suspect]
     Active Substance: ACETAMINOPHEN
     Indication: Product used for unknown indication
     Dosage: 7 GRAM
     Route: 048
     Dates: start: 20240130, end: 20240130
  2. ACETYLCYSTEINE [Suspect]
     Active Substance: ACETYLCYSTEINE
     Indication: Drug detoxification
     Dosage: 150 MILLIGRAM/KILOGRAM, 1 TOTAL
     Route: 042
     Dates: start: 20240131, end: 20240131

REACTIONS (2)
  - Poisoning deliberate [Unknown]
  - Prothrombin time ratio decreased [Unknown]

NARRATIVE: CASE EVENT DATE: 20240130
